FAERS Safety Report 7917860-X (Version None)
Quarter: 2011Q4

REPORT INFORMATION
  Report Type: 
  Country: None (occurrence: None)
  Receive Date: 20111114
  Receipt Date: 20111102
  Transmission Date: 20120403
  Serious: Yes (Life-Threatening, Hospitalization)
  Sender: FDA-Public Use
  Company Number: 2011MA016096

PATIENT
  Age: 75 Year
  Sex: Female

DRUGS (3)
  1. TRAMADOL HCL [Concomitant]
  2. CITALOPRAM HYDROBROMIDE [Suspect]
     Dosage: 20 MG;   ;PO
     Route: 048
     Dates: end: 20110610
  3. METHYLTHIONINIUM CHLORIDE (METHYLTHIONINIUM CHLORIDE) [Suspect]
     Indication: PARATHYROIDECTOMY
     Dosage: 5 MG/KG;
     Dates: start: 20110609, end: 20110609

REACTIONS (2)
  - NEUROTOXICITY [None]
  - SEROTONIN SYNDROME [None]
